FAERS Safety Report 10096041 (Version 2)
Quarter: 2014Q2

REPORT INFORMATION
  Report Type: Spontaneous
  Country: US (occurrence: US)
  Receive Date: 20140422
  Receipt Date: 20140509
  Transmission Date: 20141212
  Serious: Yes (Other)
  Sender: FDA-Public Use
  Company Number: US-BAYER-2014-056698

PATIENT
  Age: 41 Year
  Sex: Female
  Weight: 104 kg

DRUGS (7)
  1. YASMIN [Suspect]
  2. ALLEGRA [Concomitant]
     Dosage: UNK
     Route: 048
     Dates: start: 20041025
  3. PREVACID [Concomitant]
     Dosage: UNK
     Route: 048
     Dates: start: 20041025
  4. LOTREL [Concomitant]
     Dosage: UNK
     Route: 048
     Dates: start: 20041025
  5. HYDROCODONE [Concomitant]
     Indication: PAIN
  6. IBUPROFEN [Concomitant]
     Dosage: UNK
     Dates: start: 20041014
  7. MOTRIN [Concomitant]
     Dosage: 800 MG, TID
     Route: 048
     Dates: start: 20041014

REACTIONS (1)
  - Deep vein thrombosis [None]
